FAERS Safety Report 14543439 (Version 3)
Quarter: 2018Q1

REPORT INFORMATION
  Report Type: Spontaneous
  Country: JP (occurrence: JP)
  Receive Date: 20180216
  Receipt Date: 20180312
  Transmission Date: 20180509
  Serious: No
  Sender: FDA-Public Use
  Company Number: JP-DSJP-DSJ-2018-106334

PATIENT

DRUGS (6)
  1. LAXOBERON [Concomitant]
     Active Substance: SODIUM PICOSULFATE
     Dosage: 3 DROPS, AS NEEDED
     Route: 048
     Dates: start: 20171208
  2. MAGMITT [Concomitant]
     Active Substance: MAGNESIUM OXIDE
     Dosage: 330 MG, TID
     Route: 048
     Dates: start: 20171208
  3. ALOSENN                            /02118001/ [Concomitant]
     Active Substance: SENNA LEAF
     Dosage: 0.5 G, QD
     Route: 048
     Dates: start: 20171208
  4. LIXIANA TABLETS [Suspect]
     Active Substance: EDOXABAN TOSYLATE
     Indication: THROMBOSIS PROPHYLAXIS
     Dosage: 15 MG, BID
     Route: 048
     Dates: start: 20171213, end: 20171227
  5. MOSAPRIDE CITRATE [Concomitant]
     Active Substance: MOSAPRIDE CITRATE
     Dosage: 5 MG, QD
     Route: 048
     Dates: start: 20171208
  6. NAUZELIN [Concomitant]
     Active Substance: DOMPERIDONE
     Dosage: 10 MG, QD
     Route: 048
     Dates: start: 20171208

REACTIONS (1)
  - Fibrin D dimer increased [Recovered/Resolved]
